FAERS Safety Report 24021004 (Version 1)
Quarter: 2024Q2

REPORT INFORMATION
  Report Type: Report from Study
  Country: US (occurrence: US)
  Receive Date: 20240627
  Receipt Date: 20240627
  Transmission Date: 20240716
  Serious: Yes (Hospitalization)
  Sender: FDA-Public Use
  Company Number: US-APELLIS-2024-APL-0000327

PATIENT

DRUGS (16)
  1. PEGCETACOPLAN [Suspect]
     Active Substance: PEGCETACOPLAN
     Indication: Product used for unknown indication
     Dates: start: 20240215
  2. PEGCETACOPLAN [Suspect]
     Active Substance: PEGCETACOPLAN
     Dates: start: 20240509
  3. LOSARTAN [Concomitant]
     Active Substance: LOSARTAN
     Indication: Hypertension
     Dosage: 25.000MG
     Route: 048
     Dates: start: 20240116
  4. ATORVASTATIN [Concomitant]
     Active Substance: ATORVASTATIN
     Indication: Blood cholesterol increased
     Dosage: 10.000MG
     Route: 048
     Dates: start: 20230227
  5. LISINOPRIL [Concomitant]
     Active Substance: LISINOPRIL
     Indication: Hypertension
     Dosage: 5MG
     Route: 048
     Dates: start: 20231229, end: 20240123
  6. PEPCID [Concomitant]
     Active Substance: FAMOTIDINE
     Indication: Gastrooesophageal reflux disease
     Dosage: 10.000MG
     Route: 048
     Dates: start: 2013
  7. CLARITIN [Concomitant]
     Active Substance: LORATADINE
     Indication: Hypersensitivity
     Dosage: 10.000MG
     Route: 048
     Dates: start: 2014
  8. AVASTIN [Concomitant]
     Active Substance: BEVACIZUMAB
     Indication: Choroidal neovascularisation
     Dosage: 1.250MG
     Route: 031
     Dates: start: 20230410, end: 20230410
  9. AVASTIN [Concomitant]
     Active Substance: BEVACIZUMAB
     Dosage: 1.250MG
     Route: 031
     Dates: start: 20230508, end: 20230508
  10. AVASTIN [Concomitant]
     Active Substance: BEVACIZUMAB
     Dosage: 1.250MG
     Route: 031
     Dates: start: 20230630, end: 20230630
  11. AVASTIN [Concomitant]
     Active Substance: BEVACIZUMAB
     Dosage: 1.250MG
     Route: 031
     Dates: start: 20230731, end: 20230731
  12. AVASTIN [Concomitant]
     Active Substance: BEVACIZUMAB
     Dosage: 1.250MG
     Route: 031
     Dates: start: 20230908, end: 20230908
  13. AVASTIN [Concomitant]
     Active Substance: BEVACIZUMAB
     Dosage: 1.250MG
     Route: 031
     Dates: start: 20231026, end: 20231026
  14. AVASTIN [Concomitant]
     Active Substance: BEVACIZUMAB
     Dosage: 1.250MG
     Route: 031
     Dates: start: 20231221, end: 20231221
  15. AVASTIN [Concomitant]
     Active Substance: BEVACIZUMAB
     Dosage: 1.250MG
     Route: 031
     Dates: start: 20240215, end: 20240215
  16. AVASTIN [Concomitant]
     Active Substance: BEVACIZUMAB
     Dosage: 1.250MG
     Route: 031
     Dates: start: 20240411, end: 20240411

REACTIONS (1)
  - Nephrolithiasis [Not Recovered/Not Resolved]

NARRATIVE: CASE EVENT DATE: 20240618
